FAERS Safety Report 5785895-1 (Version None)
Quarter: 2008Q2

REPORT INFORMATION
  Report Type: 
  Country: None (occurrence: None)
  Receive Date: 20080620
  Receipt Date: 20080620
  Transmission Date: 20081010
  Serious: Yes (Death)
  Sender: FDA-Public Use
  Company Number: None

PATIENT
  Sex: Male

DRUGS (6)
  1. REVLIMID [Suspect]
     Indication: MULTIPLE MYELOMA
     Dosage: 10MG DAILY 21D/28D PO 2-5 DAYS
     Route: 048
  2. DEXAMETHASONE TAB [Concomitant]
  3. MORPHINE [Concomitant]
  4. ASPIRIN [Concomitant]
  5. VICODIN [Concomitant]
  6. PROCRIT [Concomitant]

REACTIONS (4)
  - BEDRIDDEN [None]
  - DISEASE PROGRESSION [None]
  - MULTIPLE MYELOMA [None]
  - PAIN [None]
